FAERS Safety Report 15406860 (Version 1)
Quarter: 2018Q3

REPORT INFORMATION
  Report Type: Report from Study
  Country: CA (occurrence: CA)
  Receive Date: 20180920
  Receipt Date: 20180920
  Transmission Date: 20181010
  Serious: Yes (Other)
  Sender: FDA-Public Use
  Company Number: CA-GLAXOSMITHKLINE-CA2018GSK096667

PATIENT
  Age: 64 Year
  Sex: Male

DRUGS (3)
  1. MEPOLIZUMAB [Suspect]
     Active Substance: MEPOLIZUMAB
     Dosage: 100 MG, Z
     Route: 042
  2. MEPOLIZUMAB [Suspect]
     Active Substance: MEPOLIZUMAB
     Indication: ASTHMA
     Dosage: 100 MG, Z (MONTHLY)
     Route: 042
     Dates: start: 20171024
  3. MEPOLIZUMAB [Suspect]
     Active Substance: MEPOLIZUMAB
     Dosage: 100 MG, Z
     Route: 042

REACTIONS (8)
  - Pulmonary oedema [Recovered/Resolved]
  - Nasopharyngitis [Recovered/Resolved]
  - Feeling hot [Unknown]
  - Influenza [Recovering/Resolving]
  - Oropharyngeal pain [Unknown]
  - Asthma [Recovering/Resolving]
  - Headache [Unknown]
  - Rash [Unknown]

NARRATIVE: CASE EVENT DATE: 201802
